FAERS Safety Report 21464086 (Version 1)
Quarter: 2022Q4

REPORT INFORMATION
  Report Type: Other
  Country: None (occurrence: US)
  Receive Date: 20221017
  Receipt Date: 20221017
  Transmission Date: 20230113
  Serious: Yes (Hospitalization, Other)
  Sender: FDA-Public Use
  Company Number: US-BIOLOGICAL E. LTD-2133899

PATIENT
  Age: 49 Year
  Sex: Male

DRUGS (4)
  1. HEPARIN SODIUM [Suspect]
     Active Substance: HEPARIN SODIUM
     Indication: Device related thrombosis
     Route: 065
  2. TIROFIBAN HYDROCHLORIDE [Suspect]
     Active Substance: TIROFIBAN HYDROCHLORIDE
     Route: 065
  3. SODIUM BICARBONATE [Suspect]
     Active Substance: SODIUM BICARBONATE
     Route: 065
  4. ASPIRIN [Concomitant]
     Active Substance: ASPIRIN
     Route: 065

REACTIONS (1)
  - Drug ineffective [Unknown]
